FAERS Safety Report 17567079 (Version 2)
Quarter: 2020Q1

REPORT INFORMATION
  Report Type: Spontaneous
  Country: US (occurrence: US)
  Receive Date: 20200320
  Receipt Date: 20200326
  Transmission Date: 20200409
  Serious: Yes (Hospitalization, Other)
  Sender: FDA-Public Use
  Company Number: US-AUROBINDO-AUR-APL-2020-013649

PATIENT
  Age: 75 Year
  Sex: Male

DRUGS (5)
  1. MORPHINE [Concomitant]
     Active Substance: MORPHINE
     Dosage: 15 EQUIVALENTS ON DAY 3
     Route: 048
  2. MORPHINE [Concomitant]
     Active Substance: MORPHINE
     Dosage: 1.63 MILLIGRAM EQUIVALENTS ON DAY 2
     Route: 048
  3. GABAPENTIN. [Suspect]
     Active Substance: GABAPENTIN
     Indication: PRODUCT USED FOR UNKNOWN INDICATION
     Dosage: 1200 MILLIGRAM, ONCE A DAY
     Route: 065
  4. MORPHINE [Concomitant]
     Active Substance: MORPHINE
     Indication: PAIN
     Dosage: 40 MILLIGRAM EQUIVALENTS ON DAY 1
     Route: 048
  5. CEFALEXIN [Concomitant]
     Active Substance: CEPHALEXIN
     Indication: INFECTION PROPHYLAXIS
     Dosage: UNK
     Route: 065

REACTIONS (7)
  - Toxicity to various agents [Recovering/Resolving]
  - Delirium [Recovered/Resolved]
  - Hypotension [Unknown]
  - Withdrawal syndrome [Recovered/Resolved]
  - Lethargy [Unknown]
  - Acute kidney injury [Recovering/Resolving]
  - Hallucination, visual [Unknown]
